FAERS Safety Report 13771767 (Version 2)
Quarter: 2017Q3

REPORT INFORMATION
  Report Type: Spontaneous
  Country: US (occurrence: US)
  Receive Date: 20170720
  Receipt Date: 20170725
  Transmission Date: 20171127
  Serious: No
  Sender: FDA-Public Use
  Company Number: US-PFIZER INC-2017313508

PATIENT
  Age: 51 Year
  Sex: Female
  Weight: 88.45 kg

DRUGS (2)
  1. LYRICA [Suspect]
     Active Substance: PREGABALIN
     Indication: PAIN
     Dosage: 75 MG, 2X/DAY
     Route: 048
     Dates: start: 201706
  2. LYRICA [Suspect]
     Active Substance: PREGABALIN
     Dosage: UNK [ACCIDENTALLY TOOK BACK TO BACK PREGABALIN PILLS (DOUBLE DOSE)]
     Dates: start: 20170718

REACTIONS (5)
  - Product use in unapproved indication [Unknown]
  - Dizziness [Not Recovered/Not Resolved]
  - Balance disorder [Not Recovered/Not Resolved]
  - Incorrect dose administered [Unknown]
  - Dry mouth [Not Recovered/Not Resolved]

NARRATIVE: CASE EVENT DATE: 201706
